FAERS Safety Report 6555260-8 (Version None)
Quarter: 2010Q1

REPORT INFORMATION
  Report Type: 
  Country: None (occurrence: None)
  Receive Date: 20100128
  Receipt Date: 20090203
  Transmission Date: 20100710
  Serious: No
  Sender: FDA-Public Use
  Company Number: A0766606A

PATIENT
  Age: 45 Year
  Sex: Male

DRUGS (7)
  1. BUPROPION HYDROCHLORIDE [Suspect]
     Indication: DEPRESSION
     Dosage: 150MG TWICE PER DAY
     Route: 048
  2. CLONAZEPAM [Concomitant]
  3. PAXIL CR [Concomitant]
  4. RELPAX [Concomitant]
  5. NIASPAN [Concomitant]
  6. ACIPHEX [Concomitant]
  7. LISINOPRIL [Concomitant]

REACTIONS (1)
  - DRUG INEFFECTIVE [None]
